FAERS Safety Report 18435517 (Version 1)
Quarter: 2020Q4

REPORT INFORMATION
  Report Type: Spontaneous
  Country: JP (occurrence: JP)
  Receive Date: 20201028
  Receipt Date: 20201028
  Transmission Date: 20210114
  Serious: Yes (Other)
  Sender: FDA-Public Use
  Company Number: JP-AMGEN-JPNSP2020171842

PATIENT
  Age: 54 Year
  Sex: Male

DRUGS (4)
  1. CRESTOR [Concomitant]
     Active Substance: ROSUVASTATIN CALCIUM
     Indication: PROPHYLAXIS
  2. CHOLEBINE [Concomitant]
     Active Substance: COLESTILAN CHLORIDE
     Indication: PROPHYLAXIS
  3. ZETIA [Concomitant]
     Active Substance: EZETIMIBE
     Indication: PROPHYLAXIS
  4. REPATHA [Suspect]
     Active Substance: EVOLOCUMAB
     Indication: PROPHYLAXIS
     Dosage: 420 MILLIGRAM, Q4WK
     Route: 058

REACTIONS (2)
  - Erythema [Recovering/Resolving]
  - Internal haemorrhage [Recovering/Resolving]

NARRATIVE: CASE EVENT DATE: 20201007
